FAERS Safety Report 17956764 (Version 5)
Quarter: 2022Q3

REPORT INFORMATION
  Report Type: Report from Study
  Country: DO (occurrence: DO)
  Receive Date: 20200629
  Receipt Date: 20220921
  Transmission Date: 20221027
  Serious: Yes (Hospitalization, Disabling, Other)
  Sender: FDA-Public Use
  Company Number: None

PATIENT
  Age: 48 Year
  Sex: Female

DRUGS (1)
  1. GILENYA [Suspect]
     Active Substance: FINGOLIMOD HYDROCHLORIDE
     Indication: Relapsing-remitting multiple sclerosis
     Dosage: 0.5 MG, QD
     Route: 048
     Dates: start: 20190114

REACTIONS (18)
  - Multiple sclerosis relapse [Recovering/Resolving]
  - Progressive relapsing multiple sclerosis [Recovering/Resolving]
  - Lymphopenia [Recovering/Resolving]
  - COVID-19 [Recovered/Resolved]
  - Motor dysfunction [Not Recovered/Not Resolved]
  - Urinary tract infection [Unknown]
  - Kidney infection [Unknown]
  - Depressed mood [Unknown]
  - Discomfort [Unknown]
  - Hepatic enzyme increased [Unknown]
  - Pyrexia [Unknown]
  - Malaise [Recovering/Resolving]
  - Feeling abnormal [Not Recovered/Not Resolved]
  - Limb discomfort [Not Recovered/Not Resolved]
  - Loss of personal independence in daily activities [Unknown]
  - Anxiety [Unknown]
  - Headache [Unknown]
  - Fatigue [Unknown]

NARRATIVE: CASE EVENT DATE: 20200116
